FAERS Safety Report 12930284 (Version 1)
Quarter: 2016Q4

REPORT INFORMATION
  Report Type: Spontaneous
  Country: US (occurrence: US)
  Receive Date: 20161110
  Receipt Date: 20161110
  Transmission Date: 20170207
  Serious: No
  Sender: FDA-Public Use
  Company Number: None

PATIENT
  Age: 58 Year
  Sex: Male

DRUGS (6)
  1. SOVALDI [Suspect]
     Active Substance: SOFOSBUVIR
     Indication: OEDEMA
  2. SOVALDI [Suspect]
     Active Substance: SOFOSBUVIR
     Indication: CHRONIC HEPATITIS C
  3. DAKLINZA [Concomitant]
     Active Substance: DACLATASVIR
  4. SOVALDI [Suspect]
     Active Substance: SOFOSBUVIR
     Indication: RHINITIS ALLERGIC
  5. RIBAVIRIN. [Concomitant]
     Active Substance: RIBAVIRIN
  6. SOVALDI [Suspect]
     Active Substance: SOFOSBUVIR
     Indication: SLEEP DISORDER

REACTIONS (2)
  - Gastrointestinal haemorrhage [None]
  - Haemoglobin decreased [None]

NARRATIVE: CASE EVENT DATE: 20161110
